FAERS Safety Report 11932565 (Version 2)
Quarter: 2016Q1

REPORT INFORMATION
  Report Type: Spontaneous
  Country: US (occurrence: US)
  Receive Date: 20160120
  Receipt Date: 20160125
  Transmission Date: 20160526
  Serious: Yes (Death, Other)
  Sender: FDA-Public Use
  Company Number: US-PFIZER INC-2016025433

PATIENT
  Age: 66 Year
  Sex: Male

DRUGS (1)
  1. GABAPENTIN. [Suspect]
     Active Substance: GABAPENTIN
     Indication: DIABETES MELLITUS
     Dosage: 100 MG, 3X/DAY
     Dates: start: 1994

REACTIONS (5)
  - Hypertension [Unknown]
  - Lung carcinoma cell type unspecified recurrent [Fatal]
  - Cerebral haemorrhage [Unknown]
  - Chronic obstructive pulmonary disease [Unknown]
  - Musculoskeletal pain [Unknown]

NARRATIVE: CASE EVENT DATE: 1999
